FAERS Safety Report 10223274 (Version 1)
Quarter: 2014Q2

REPORT INFORMATION
  Report Type: Spontaneous
  Country: US (occurrence: None)
  Receive Date: 20140606
  Receipt Date: 20140606
  Transmission Date: 20141212
  Serious: Yes (Life-Threatening)
  Sender: FDA-Public Use
  Company Number: None

PATIENT
  Age: 48 Year
  Sex: Male
  Weight: 73.48 kg

DRUGS (7)
  1. CLOZAPINE [Suspect]
  2. LAMOTRIGINE [Suspect]
  3. TOPIRAMATE [Suspect]
  4. MINOCYCLINE [Suspect]
  5. ATORVASTATIN [Suspect]
  6. FENOFIBRATE [Suspect]
  7. ATORVASTATIN CALCIUM [Concomitant]

REACTIONS (4)
  - Lethargy [None]
  - Dizziness [None]
  - Abdominal pain upper [None]
  - Pancreatitis acute [None]
